FAERS Safety Report 4693806-5 (Version None)
Quarter: 2005Q2

REPORT INFORMATION
  Report Type: 
  Country: None (occurrence: None)
  Receive Date: 20050616
  Receipt Date: 20050601
  Transmission Date: 20051028
  Serious: Yes (Death)
  Sender: FDA-Public Use
  Company Number: 215137

PATIENT
  Age: 61 Year
  Sex: Female

DRUGS (6)
  1. AVASTIN [Suspect]
     Indication: COLORECTAL CANCER METASTATIC
     Dosage: 590 MG, Q3W, INTRAVENOUS
     Route: 042
     Dates: start: 20050105, end: 20050330
  2. CARVEDILOL [Concomitant]
  3. PANTOPRAZOLE SODIUM [Concomitant]
  4. THEOPHYLLINE [Concomitant]
  5. PREDNISOLONE [Concomitant]
  6. MONTELUKAST (MONTELUKAST SODIUM) [Concomitant]

REACTIONS (1)
  - DEATH [None]
